FAERS Safety Report 6295574-2 (Version None)
Quarter: 2009Q3

REPORT INFORMATION
  Report Type: 
  Country: None (occurrence: None)
  Receive Date: 20090731
  Receipt Date: 20090723
  Transmission Date: 20100115
  Serious: No
  Sender: FDA-Public Use
  Company Number: 20096933

PATIENT
  Age: 93 Year
  Sex: Female

DRUGS (3)
  1. LIORESAL [Suspect]
     Indication: MUSCLE SPASTICITY
     Dosage: 206.2 MCG, DAILY, INTRATHECAL
     Route: 037
  2. HYDROMORPHONE HCL [Concomitant]
  3. BUPIVACAINE [Concomitant]

REACTIONS (1)
  - SKIN EROSION [None]
